FAERS Safety Report 5882631-5 (Version None)
Quarter: 2008Q3

REPORT INFORMATION
  Report Type: 
  Country: None (occurrence: None)
  Receive Date: 20080913
  Receipt Date: 20080808
  Transmission Date: 20090109
  Serious: No
  Sender: FDA-Public Use
  Company Number: US-ABBOTT-08P-163-0469869-00

PATIENT
  Sex: Female
  Weight: 72.64 kg

DRUGS (3)
  1. HUMIRA [Suspect]
     Indication: CROHN'S DISEASE
     Route: 058
     Dates: start: 20080808, end: 20080808
  2. HUMIRA [Suspect]
  3. HYDROCORTISONE [Concomitant]
     Indication: CROHN'S DISEASE
     Route: 048
     Dates: start: 20050101

REACTIONS (1)
  - INJECTION SITE IRRITATION [None]
